FAERS Safety Report 18372263 (Version 1)
Quarter: 2020Q4

REPORT INFORMATION
  Report Type: Spontaneous
  Country: US (occurrence: US)
  Receive Date: 20201012
  Receipt Date: 20201012
  Transmission Date: 20210114
  Serious: No
  Sender: FDA-Public Use
  Company Number: US-JNJFOC-20201006348

PATIENT
  Sex: Female

DRUGS (1)
  1. XARELTO [Suspect]
     Active Substance: RIVAROXABAN
     Indication: THROMBOSIS
     Route: 048
     Dates: start: 20201001

REACTIONS (10)
  - Sensory loss [Unknown]
  - Feeling abnormal [Unknown]
  - Insomnia [Unknown]
  - Arthralgia [Unknown]
  - Off label use [Unknown]
  - Hypoaesthesia [Unknown]
  - Product use issue [Unknown]
  - Skin discolouration [Unknown]
  - Headache [Not Recovered/Not Resolved]
  - Back pain [Unknown]
